FAERS Safety Report 13466107 (Version 1)
Quarter: 2017Q2

REPORT INFORMATION
  Report Type: Spontaneous
  Country: US (occurrence: US)
  Receive Date: 20170420
  Receipt Date: 20170420
  Transmission Date: 20170830
  Serious: Yes (Other)
  Sender: FDA-Public Use
  Company Number: None

PATIENT
  Sex: Male

DRUGS (1)
  1. NEXAVAR [Suspect]
     Active Substance: SORAFENIB
     Indication: HEPATOCELLULAR CARCINOMA
     Dosage: NEXAVAR 200MG 2 TABLETS TWICE A DAY ORAL
     Route: 048
     Dates: start: 20170214

REACTIONS (2)
  - Diarrhoea [None]
  - Weight decreased [None]
